FAERS Safety Report 9001325 (Version 1)
Quarter: 2013Q1

REPORT INFORMATION
  Report Type: Spontaneous
  Country: AU (occurrence: AU)
  Receive Date: 20130107
  Receipt Date: 20130107
  Transmission Date: 20140127
  Serious: Yes (Death, Hospitalization)
  Sender: FDA-Public Use
  Company Number: AU-ASTRAZENECA-2013SE00681

PATIENT
  Age: 28283 Day
  Sex: Female

DRUGS (10)
  1. OMEPRAZOLE [Suspect]
     Route: 048
  2. BRICANYL [Suspect]
     Route: 065
  3. ASPIRIN [Suspect]
  4. AROPAX [Suspect]
  5. PANADOL OSTEO [Suspect]
  6. CORTATE [Suspect]
  7. LIPITOR [Suspect]
  8. PRADAXA [Suspect]
     Indication: ATRIAL FIBRILLATION
     Dates: start: 20110623, end: 20121123
  9. SOTALOL HYDROCHLORIDE [Suspect]
  10. THYROXINE SODIUM [Suspect]

REACTIONS (2)
  - Abdominal pain [Fatal]
  - Pancreatitis [Fatal]
